FAERS Safety Report 5221232-9 (Version None)
Quarter: 2007Q1

REPORT INFORMATION
  Report Type: 
  Country: None (occurrence: None)
  Receive Date: 20070126
  Receipt Date: 20070115
  Transmission Date: 20070707
  Serious: Yes (Other)
  Sender: FDA-Public Use
  Company Number: JP-PFIZER INC-2006150788

PATIENT
  Sex: Male

DRUGS (10)
  1. GABAPEN [Suspect]
     Indication: HYPOAESTHESIA
     Dosage: DAILY DOSE:900MG
     Route: 048
     Dates: start: 20061110, end: 20061128
  2. TAMSULOSIN HCL [Concomitant]
     Route: 048
  3. TEGRETOL [Concomitant]
     Route: 048
     Dates: start: 20060613, end: 20061128
  4. SIGMART [Concomitant]
     Route: 048
  5. TAKEPRON [Concomitant]
     Route: 048
  6. PRAMIPEXOLE DIHYDROCHLORIDE [Concomitant]
     Route: 048
     Dates: start: 20060606, end: 20061128
  7. MARZULENE S [Concomitant]
     Route: 048
  8. FERRO-GRADUMET [Concomitant]
     Route: 048
  9. LANDSEN [Concomitant]
     Route: 048
  10. DEPAS [Concomitant]
     Route: 048
     Dates: start: 20060801, end: 20061128

REACTIONS (1)
  - ILEUS [None]
